FAERS Safety Report 9429139 (Version 5)
Quarter: 2014Q2

REPORT INFORMATION
  Report Type: Spontaneous
  Country: JP (occurrence: JP)
  Receive Date: 20130730
  Receipt Date: 20140505
  Transmission Date: 20141212
  Serious: Yes (Hospitalization, Other)
  Sender: FDA-Public Use
  Company Number: JP-JNJFOC-20130715691

PATIENT
  Age: 61 Year
  Sex: Female

DRUGS (2)
  1. RISPERDAL [Suspect]
     Indication: PRODUCT USED FOR UNKNOWN INDICATION
     Route: 048
  2. RISPERIDAL [Suspect]
     Indication: PRODUCT USED FOR UNKNOWN INDICATION
     Dosage: P.R.N (AS NECESSARY)
     Route: 048

REACTIONS (4)
  - Dehydration [Recovered/Resolved]
  - Cerebral infarction [Recovering/Resolving]
  - Convulsion [Recovering/Resolving]
  - Inappropriate schedule of drug administration [Unknown]
